FAERS Safety Report 20389335 (Version 1)
Quarter: 2022Q1

REPORT INFORMATION
  Report Type: Spontaneous
  Country: US (occurrence: US)
  Receive Date: 20220128
  Receipt Date: 20220128
  Transmission Date: 20220423
  Serious: No
  Sender: FDA-Public Use
  Company Number: US-ELI_LILLY_AND_COMPANY-US202201010154

PATIENT
  Age: 65 Year
  Sex: Female

DRUGS (4)
  1. FORTEO [Suspect]
     Active Substance: TERIPARATIDE
     Indication: Osteopenia
     Dosage: UNK UNK, UNKNOWN
     Route: 065
     Dates: start: 202103
  2. FORTEO [Suspect]
     Active Substance: TERIPARATIDE
     Indication: Osteopenia
     Dosage: UNK UNK, UNKNOWN
     Route: 065
     Dates: start: 202103
  3. FORTEO [Suspect]
     Active Substance: TERIPARATIDE
     Dosage: UNK UNK, UNKNOWN
     Route: 065
  4. FORTEO [Suspect]
     Active Substance: TERIPARATIDE
     Dosage: UNK UNK, UNKNOWN
     Route: 065

REACTIONS (2)
  - Accidental underdose [Unknown]
  - Off label use [Unknown]

NARRATIVE: CASE EVENT DATE: 20220122
